FAERS Safety Report 9606802 (Version 1)
Quarter: 2013Q4

REPORT INFORMATION
  Report Type: Spontaneous
  Country: US (occurrence: US)
  Receive Date: 20131008
  Receipt Date: 20131008
  Transmission Date: 20140711
  Serious: No
  Sender: FDA-Public Use
  Company Number: US-AMGEN-USASP2013063845

PATIENT
  Age: 73 Year
  Sex: Female

DRUGS (11)
  1. PROLIA [Suspect]
     Indication: OSTEOPOROSIS
     Dosage: UNK
     Route: 065
     Dates: start: 20130401
  2. ZOCOR [Concomitant]
     Indication: HYPERSENSITIVITY
  3. CLARITIN                           /00413701/ [Concomitant]
     Indication: HYPERSENSITIVITY
  4. SINGULAIR [Concomitant]
     Indication: HYPERSENSITIVITY
  5. BIOTIN [Concomitant]
  6. FOLBIC [Concomitant]
  7. RESTASIS [Concomitant]
     Dosage: UNK, BID
  8. REFRESH PM                         /01210201/ [Concomitant]
     Dosage: UNK, QHS
  9. OSCAL                              /00514701/ [Concomitant]
     Dosage: 500 MG, BID
  10. VITAMIN D3 [Concomitant]
     Dosage: 5000 IU, 3 TIMES/WK (ON MONDAY, WEDNESDAY AND FRIDAY)
  11. TOZAL [Concomitant]

REACTIONS (1)
  - Arthralgia [Unknown]
